FAERS Safety Report 17608928 (Version 1)
Quarter: 2020Q2

REPORT INFORMATION
  Report Type: Spontaneous
  Country: CA (occurrence: CA)
  Receive Date: 20200401
  Receipt Date: 20200401
  Transmission Date: 20200713
  Serious: Yes (Other)
  Sender: FDA-Public Use
  Company Number: CA-DRREDDYS-USA/CAN/20/0121414

PATIENT

DRUGS (2)
  1. TICAGRELOR. [Suspect]
     Active Substance: TICAGRELOR
     Indication: PRODUCT USED FOR UNKNOWN INDICATION
     Route: 065
  2. ATORVASTATIN [Suspect]
     Active Substance: ATORVASTATIN
     Indication: PRODUCT USED FOR UNKNOWN INDICATION
     Route: 048

REACTIONS (3)
  - Myalgia [Recovered/Resolved]
  - Drug interaction [Recovered/Resolved]
  - Rhabdomyolysis [Recovered/Resolved]
